FAERS Safety Report 16721955 (Version 1)
Quarter: 2019Q3

REPORT INFORMATION
  Report Type: Report from Study
  Country: US (occurrence: US)
  Receive Date: 20190820
  Receipt Date: 20190820
  Transmission Date: 20191005
  Serious: Yes (Death, Hospitalization)
  Sender: FDA-Public Use
  Company Number: US-ACTELION-A-NJ2018-175775

PATIENT
  Age: 64 Year
  Sex: Male
  Weight: 109.75 kg

DRUGS (4)
  1. OPSUMIT [Suspect]
     Active Substance: MACITENTAN
     Indication: PULMONARY ARTERIAL HYPERTENSION
     Dosage: 10 MG, QD
     Route: 048
     Dates: end: 20190811
  2. TYVASO [Suspect]
     Active Substance: TREPROSTINIL
     Indication: PRODUCT USED FOR UNKNOWN INDICATION
     Dosage: 6 BREATHS/SESSION
     Route: 065
  3. TYVASO [Suspect]
     Active Substance: TREPROSTINIL
     Dosage: 4 BREATHS/SESSION, QID
     Route: 065
  4. ELIQUIS [Concomitant]
     Active Substance: APIXABAN

REACTIONS (16)
  - Syncope [Unknown]
  - Exercise tolerance decreased [Unknown]
  - Fatigue [Unknown]
  - Pulmonary arterial pressure abnormal [Unknown]
  - Haemoptysis [Unknown]
  - Dyspnoea [Unknown]
  - Hypotension [Recovering/Resolving]
  - Blood pressure increased [Unknown]
  - Influenza like illness [Unknown]
  - Epistaxis [Unknown]
  - Oedema peripheral [Unknown]
  - Death [Fatal]
  - Groin infection [Unknown]
  - Cough [Unknown]
  - Sinus congestion [Unknown]
  - Rash pruritic [Unknown]

NARRATIVE: CASE EVENT DATE: 20190811
